FAERS Safety Report 7625652-4 (Version None)
Quarter: 2011Q3

REPORT INFORMATION
  Report Type: 
  Country: None (occurrence: None)
  Receive Date: 20110721
  Receipt Date: 20110714
  Transmission Date: 20111222
  Serious: Yes (Death, Life-Threatening)
  Sender: FDA-Public Use
  Company Number: CN-GENZYME-FLUD-1001102

PATIENT
  Sex: Male
  Weight: 100 kg

DRUGS (10)
  1. ITRACONAZOLE [Concomitant]
     Indication: GRANULOCYTOPENIA
  2. ITRACONAZOLE [Concomitant]
     Indication: LUNG DISORDER
  3. MEROPENEM [Concomitant]
     Indication: PNEUMONIA FUNGAL
     Dosage: 2 G, UNK
     Route: 042
  4. MEROPENEM [Concomitant]
     Indication: GRANULOCYTOPENIA
  5. FLUDARA [Suspect]
     Indication: ACUTE MYELOID LEUKAEMIA
     Dosage: 50 MG, QD
     Route: 042
     Dates: start: 20110331, end: 20110404
  6. NEUPOGEN [Suspect]
     Indication: ACUTE MYELOID LEUKAEMIA
     Dosage: 400 UG/D, QD
     Route: 042
     Dates: start: 20110331, end: 20110404
  7. CYTARABINE [Suspect]
     Indication: ACUTE MYELOID LEUKAEMIA
     Dosage: 4.4 G, BID
     Route: 042
     Dates: start: 20110331, end: 20110404
  8. MEROPENEM [Concomitant]
     Indication: PYREXIA
  9. ITRACONAZOLE [Concomitant]
     Indication: PNEUMONIA FUNGAL
     Dosage: 200 MG, QD
     Route: 042
     Dates: start: 20110223, end: 20110421
  10. ITRACONAZOLE [Concomitant]
     Indication: PYREXIA

REACTIONS (2)
  - CEREBRAL HAEMORRHAGE [None]
  - CARDIO-RESPIRATORY ARREST [None]
